FAERS Safety Report 20841637 (Version 1)
Quarter: 2022Q2

REPORT INFORMATION
  Report Type: Report from Study
  Country: FR (occurrence: FR)
  Receive Date: 20220518
  Receipt Date: 20220518
  Transmission Date: 20220721
  Serious: Yes (Other)
  Sender: FDA-Public Use
  Company Number: FR-NOVARTISPH-NVSC2022FR111880

PATIENT
  Sex: Male

DRUGS (2)
  1. TABRECTA [Suspect]
     Active Substance: CAPMATINIB
     Indication: Non-small cell lung cancer metastatic
     Dosage: 200 UNK  QD (200X2)
     Route: 048
     Dates: end: 20220503
  2. TABRECTA [Suspect]
     Active Substance: CAPMATINIB
     Dosage: 200 UNK, QD
     Route: 048
     Dates: start: 20220510

REACTIONS (2)
  - Oedema peripheral [Recovering/Resolving]
  - Localised oedema [Recovering/Resolving]

NARRATIVE: CASE EVENT DATE: 20220503
